FAERS Safety Report 19860892 (Version 1)
Quarter: 2021Q3

REPORT INFORMATION
  Report Type: Spontaneous
  Country: US (occurrence: US)
  Receive Date: 20210921
  Receipt Date: 20210921
  Transmission Date: 20211014
  Serious: Yes (Disabling, Other)
  Sender: FDA-Public Use
  Company Number: None

PATIENT
  Age: 63 Year
  Sex: Male
  Weight: 90.45 kg

DRUGS (11)
  1. METOPROLOL SUCCINATE 50MG [Concomitant]
     Active Substance: METOPROLOL SUCCINATE
  2. CELLCEPT [Concomitant]
     Active Substance: MYCOPHENOLATE MOFETIL\MYCOPHENOLATE MOFETIL HYDROCHLORIDE
  3. BRILINTA [Concomitant]
     Active Substance: TICAGRELOR
  4. LISINOPRIL 5 MG [Concomitant]
     Active Substance: LISINOPRIL
  5. NIFEDIPINE ER 60 MG [Concomitant]
  6. LANTUS SOLOSTAR [Concomitant]
     Active Substance: INSULIN GLARGINE
  7. ASPIRIN 81 MG [Concomitant]
     Active Substance: ASPIRIN
  8. UROXATRAL [Concomitant]
     Active Substance: ALFUZOSIN HYDROCHLORIDE
  9. METOPROLOL. [Suspect]
     Active Substance: METOPROLOL
     Indication: HYPERTENSION
     Dosage: ?          QUANTITY:1 TABLET(S);?
     Route: 048
     Dates: start: 20190920, end: 20210401
  10. ATORVASTATIN 40 MG [Concomitant]
     Active Substance: ATORVASTATIN
  11. PROGRAF [Concomitant]
     Active Substance: TACROLIMUS

REACTIONS (2)
  - Sexual dysfunction [None]
  - Mental disorder [None]

NARRATIVE: CASE EVENT DATE: 20200301
